FAERS Safety Report 12771709 (Version 1)
Quarter: 2016Q3

REPORT INFORMATION
  Report Type: Report from Study
  Country: ZA (occurrence: ZA)
  Receive Date: 20160922
  Receipt Date: 20160922
  Transmission Date: 20161109
  Serious: Yes (Death, Hospitalization, Other)
  Sender: FDA-Public Use
  Company Number: ZA-AMGEN-ZAFSL2016127359

PATIENT
  Age: 67 Year
  Sex: Male

DRUGS (1)
  1. ARANESP [Suspect]
     Active Substance: DARBEPOETIN ALFA
     Indication: PRODUCT USED FOR UNKNOWN INDICATION
     Dosage: 30 UNK, QWK
     Route: 058
     Dates: start: 201510, end: 201608

REACTIONS (3)
  - Hip fracture [Unknown]
  - Death [Fatal]
  - Fall [Unknown]

NARRATIVE: CASE EVENT DATE: 201608
